FAERS Safety Report 5677435-2 (Version None)
Quarter: 2008Q1

REPORT INFORMATION
  Report Type: 
  Country: None (occurrence: None)
  Receive Date: 20080324
  Receipt Date: 20080312
  Transmission Date: 20080703
  Serious: Yes (Hospitalization, Other)
  Sender: FDA-Public Use
  Company Number: NO-PFIZER INC-2008023942

PATIENT
  Sex: Female

DRUGS (4)
  1. ZOLOFT [Suspect]
     Indication: DEPRESSION
     Route: 048
     Dates: start: 19980319, end: 19980601
  2. TRIPHASIL-21 [Suspect]
     Route: 048
  3. CIPRAMIL [Suspect]
     Dates: start: 19981120, end: 19990601
  4. IMOVANE [Concomitant]
     Route: 048
     Dates: start: 19980319

REACTIONS (14)
  - ABNORMAL BEHAVIOUR [None]
  - AFFECT LABILITY [None]
  - ANXIETY [None]
  - DEPRESSION [None]
  - DRUG INTOLERANCE [None]
  - HALLUCINATION [None]
  - INSOMNIA [None]
  - MALAISE [None]
  - MENTAL DISORDER [None]
  - PERSONALITY DISORDER [None]
  - POISONING [None]
  - PSYCHOTIC DISORDER [None]
  - VERTIGO [None]
  - VOMITING [None]
